FAERS Safety Report 6674196-5 (Version None)
Quarter: 2010Q2

REPORT INFORMATION
  Report Type: 
  Country: None (occurrence: None)
  Receive Date: 20100407
  Receipt Date: 20100323
  Transmission Date: 20101027
  Serious: Yes (Hospitalization)
  Sender: FDA-Public Use
  Company Number: 6533

PATIENT
  Age: 82 Year
  Sex: Female

DRUGS (6)
  1. MACUGEN [Suspect]
     Indication: MACULAR DEGENERATION
     Dosage: 0.3MG, UNK, INTRAOCULAR
     Route: 031
     Dates: start: 20091001, end: 20091015
  2. PREDNISONE [Concomitant]
  3. CYCLOPHOSPHAMIDE [Concomitant]
  4. ISOPTIN [Concomitant]
  5. PLAVIX [Concomitant]
  6. LANSOPRAZOLE [Concomitant]

REACTIONS (1)
  - IIIRD NERVE PARALYSIS [None]
